FAERS Safety Report 6233150-8 (Version None)
Quarter: 2009Q2

REPORT INFORMATION
  Report Type: 
  Country: None (occurrence: None)
  Receive Date: 20090612
  Receipt Date: 20090601
  Transmission Date: 20091009
  Serious: Yes (Hospitalization)
  Sender: FDA-Public Use
  Company Number: 236161K09USA

PATIENT
  Age: 64 Year
  Sex: Female

DRUGS (6)
  1. REBIF [Suspect]
     Indication: MULTIPLE SCLEROSIS
     Dosage: 44 MCG, 3 IN 1 WEEKS, SUBCUTANEOUS
     Route: 058
     Dates: start: 20070503, end: 20090401
  2. NEURONTIN [Concomitant]
  3. ADVAIR HFA [Concomitant]
  4. LIPITOR [Concomitant]
  5. ENABLEX(DARIFENACIN) [Concomitant]
  6. VESICARE [Concomitant]

REACTIONS (7)
  - BALANCE DISORDER [None]
  - BLOOD SODIUM DECREASED [None]
  - DEHYDRATION [None]
  - HYPOTENSION [None]
  - LOSS OF CONSCIOUSNESS [None]
  - OESOPHAGEAL ULCER [None]
  - SIALOADENITIS [None]
